FAERS Safety Report 4924493-6 (Version None)
Quarter: 2006Q1

REPORT INFORMATION
  Report Type: 
  Country: None (occurrence: None)
  Receive Date: 20060227
  Receipt Date: 20060214
  Transmission Date: 20060701
  Serious: Yes (Other)
  Sender: FDA-Public Use
  Company Number: GR-AVENTIS-200611591GDDC

PATIENT
  Sex: Male

DRUGS (1)
  1. GLIBENCLAMIDE + METFORMIN [Suspect]
     Indication: DIABETES MELLITUS
     Dosage: DOSE: UNK

REACTIONS (1)
  - WHITE BLOOD CELL COUNT INCREASED [None]
